FAERS Safety Report 22198903 (Version 1)
Quarter: 2023Q2

REPORT INFORMATION
  Report Type: Spontaneous
  Country: HR (occurrence: HR)
  Receive Date: 20230411
  Receipt Date: 20230411
  Transmission Date: 20230721
  Serious: Yes (Hospitalization, Other)
  Sender: FDA-Public Use
  Company Number: HR-JNJFOC-20230352811

PATIENT
  Age: 6 Decade
  Sex: Female

DRUGS (12)
  1. DEXAMETHASONE [Suspect]
     Active Substance: DEXAMETHASONE
     Indication: Plasmacytoma
     Route: 065
     Dates: start: 20221117
  2. DEXAMETHASONE [Suspect]
     Active Substance: DEXAMETHASONE
     Route: 065
     Dates: start: 202104, end: 202107
  3. DEXAMETHASONE [Suspect]
     Active Substance: DEXAMETHASONE
     Route: 065
     Dates: start: 202202, end: 202204
  4. BORTEZOMIB [Suspect]
     Active Substance: BORTEZOMIB
     Indication: Plasmacytoma
     Route: 065
     Dates: start: 202104, end: 202107
  5. BORTEZOMIB [Suspect]
     Active Substance: BORTEZOMIB
     Route: 065
     Dates: start: 202202, end: 202204
  6. TAMOXIFEN [Suspect]
     Active Substance: TAMOXIFEN
     Indication: Hormone therapy
     Route: 065
     Dates: start: 201912, end: 202107
  7. THALIDOMIDE [Suspect]
     Active Substance: THALIDOMIDE
     Indication: Invasive ductal breast carcinoma
     Route: 065
     Dates: start: 202104, end: 202107
  8. REVLIMID [Suspect]
     Active Substance: LENALIDOMIDE
     Indication: Plasmacytoma
     Route: 065
     Dates: start: 20221117, end: 20230216
  9. DARZALEX [Suspect]
     Active Substance: DARATUMUMAB
     Indication: Plasmacytoma
     Route: 058
     Dates: start: 202104, end: 202107
  10. DARZALEX [Suspect]
     Active Substance: DARATUMUMAB
     Route: 058
     Dates: start: 20221117
  11. DARZALEX [Suspect]
     Active Substance: DARATUMUMAB
     Route: 058
     Dates: start: 202202, end: 202204
  12. ZOLEDRONIC ACID [Concomitant]
     Active Substance: ZOLEDRONIC ACID
     Indication: Vertebral lesion
     Route: 065
     Dates: start: 202101, end: 20221117

REACTIONS (10)
  - Breast cancer recurrent [Unknown]
  - Renal failure [Recovering/Resolving]
  - Constipation [Unknown]
  - Electrocardiogram QT prolonged [Unknown]
  - Spinal pain [Unknown]
  - Lumbar vertebral fracture [Recovering/Resolving]
  - Drug intolerance [Unknown]
  - Enterocolitis bacterial [Unknown]
  - Urosepsis [Unknown]
  - Peripheral sensorimotor neuropathy [Recovering/Resolving]

NARRATIVE: CASE EVENT DATE: 20210501
